FAERS Safety Report 13981592 (Version 1)
Quarter: 2017Q3

REPORT INFORMATION
  Report Type: Spontaneous
  Country: US (occurrence: US)
  Receive Date: 20170917
  Receipt Date: 20170917
  Transmission Date: 20171128
  Serious: Yes (Disabling)
  Sender: FDA-Public Use
  Company Number: None

PATIENT
  Age: 61 Year
  Sex: Female
  Weight: 45.9 kg

DRUGS (4)
  1. GADAVIST [Suspect]
     Active Substance: GADOBUTROL
     Indication: NUCLEAR MAGNETIC RESONANCE IMAGING
     Dosage: OTHER FREQUENCY:USED 2 TIMES;?
     Route: 042
     Dates: start: 20140530, end: 20140530
  2. DAIL VITAMINS [Concomitant]
  3. MRI [Concomitant]
  4. MULTIHANCE [Suspect]
     Active Substance: GADOBENATE DIMEGLUMINE
     Indication: NUCLEAR MAGNETIC RESONANCE IMAGING
     Route: 042

REACTIONS (3)
  - Toxicity to various agents [None]
  - Impaired work ability [None]
  - Asthenia [None]

NARRATIVE: CASE EVENT DATE: 20170504
